FAERS Safety Report 9190503 (Version 1)
Quarter: 2013Q1

REPORT INFORMATION
  Report Type: Spontaneous
  Country: US (occurrence: US)
  Receive Date: 20130326
  Receipt Date: 20130326
  Transmission Date: 20140127
  Serious: No
  Sender: FDA-Public Use
  Company Number: US-B.I. PHARMACEUTICALS,INC./RIDGEFIELD-2013-BI-07233BP

PATIENT
  Sex: Female
  Weight: 92 kg

DRUGS (10)
  1. TRAZODONE [Concomitant]
     Indication: INSOMNIA
     Dosage: 100 MG
     Route: 048
  2. METHADONE [Concomitant]
     Indication: PAIN
     Route: 048
  3. POTASSIUM [Concomitant]
     Dosage: 10 MEQ
     Route: 048
  4. LISINOPRIL [Concomitant]
     Indication: HYPERTENSION
     Route: 048
  5. LAMICTAL [Concomitant]
     Indication: DEPRESSION
     Route: 048
  6. FUROSEMIDE [Concomitant]
     Dosage: 10 MG
     Route: 048
  7. SPIRIVA [Suspect]
     Indication: CHRONIC OBSTRUCTIVE PULMONARY DISEASE
     Dosage: 18 MCG
     Route: 055
     Dates: start: 201210
  8. CYMBALTA [Concomitant]
     Indication: DEPRESSION
     Dosage: 30 MG
     Route: 048
  9. DICYCLOMINE [Concomitant]
     Indication: GASTROINTESTINAL INFLAMMATION
     Dosage: 60 MG
     Route: 048
  10. LEVOTHYROXINE [Concomitant]
     Indication: THYROID DISORDER
     Route: 048

REACTIONS (3)
  - Upper-airway cough syndrome [Not Recovered/Not Resolved]
  - Headache [Not Recovered/Not Resolved]
  - Nausea [Not Recovered/Not Resolved]
